FAERS Safety Report 5025227-X (Version None)
Quarter: 2006Q2

REPORT INFORMATION
  Report Type: 
  Country: None (occurrence: None)
  Receive Date: 20060426
  Receipt Date: 20060130
  Transmission Date: 20061013
  Serious: Yes (Other)
  Sender: FDA-Public Use
  Company Number: 2006015632

PATIENT
  Age: 75 Year
  Sex: Female
  Weight: 69.4003 kg

DRUGS (6)
  1. LYRICA [Suspect]
     Indication: NEUROPATHY PERIPHERAL
     Dosage: 150 MG (50 MG,3 IN 1D)
     Dates: start: 20051101
  2. LOVASTATIN [Concomitant]
  3. HYDROCHLOROTHIAZIDE [Concomitant]
  4. GEMFIBROZIL [Concomitant]
  5. DARVOCET [Concomitant]
  6. MULTIVITAMIN [Concomitant]

REACTIONS (5)
  - ARTHRALGIA [None]
  - DISCOMFORT [None]
  - JOINT STIFFNESS [None]
  - MUSCLE SPASMS [None]
  - SKIN DISCOLOURATION [None]
